FAERS Safety Report 4744006-1 (Version None)
Quarter: 2005Q3

REPORT INFORMATION
  Report Type: 
  Country: None (occurrence: None)
  Receive Date: 20050809
  Receipt Date: 20050726
  Transmission Date: 20060218
  Serious: Yes (Death)
  Sender: FDA-Public Use
  Company Number: US015697

PATIENT
  Age: 61 Year
  Sex: Male

DRUGS (5)
  1. ACTIQ [Suspect]
     Indication: CANCER PAIN
     Dosage: 400 UG QD BUCCAL
     Route: 002
     Dates: start: 20050220
  2. DURAGESIC-100 [Suspect]
     Indication: CANCER PAIN
     Dosage: 150 UG Q72HR TRANSDERMAL
     Route: 062
     Dates: start: 20050223
  3. SOLU-MEDROL [Concomitant]
  4. ACTISKENAN [Concomitant]
  5. DOLIPRANE [Concomitant]

REACTIONS (1)
  - DISEASE PROGRESSION [None]
